FAERS Safety Report 26206574 (Version 1)
Quarter: 2025Q4

REPORT INFORMATION
  Report Type: Report from Study
  Country: US (occurrence: US)
  Receive Date: 20251229
  Receipt Date: 20251229
  Transmission Date: 20260118
  Serious: Yes (Death)
  Sender: BAUSCH AND LOMB
  Company Number: US-BAUSCH-BL-2024-012858

PATIENT
  Age: 71 Year
  Sex: Male

DRUGS (1)
  1. XIFAXAN [Suspect]
     Active Substance: RIFAXIMIN
     Indication: Product used for unknown indication
     Dosage: BID
     Route: 048

REACTIONS (4)
  - Death [Fatal]
  - Ammonia increased [Unknown]
  - Therapy interrupted [Unknown]
  - Insurance issue [Unknown]
